FAERS Safety Report 8814314 (Version 2)
Quarter: 2012Q4

REPORT INFORMATION
  Report Type: 
  Country: US (occurrence: US)
  Receive Date: 20120928
  Receipt Date: 20121129
  Transmission Date: 20130627
  Serious: Yes (Other)
  Sender: FDA-Public Use
  Company Number: US-SHIRE-ALL1-2012-04451

PATIENT
  Age: 19 None
  Sex: Female

DRUGS (4)
  1. VYVANSE [Suspect]
     Indication: DEPRESSION
     Dosage: UNK, Other(every other day alternating with MAS)
     Route: 048
     Dates: start: 201105
  2. AMPHETAMINE SALTS [Suspect]
     Indication: DEPRESSION
     Dosage: UNK, Other(every other day alternating with Vyvanse)
     Route: 048
     Dates: start: 201105
  3. ABILIFY [Concomitant]
     Indication: PRODUCT USED FOR UNKNOWN INDICATION
     Dosage: UNK, Unknown
     Route: 065
     Dates: start: 201105, end: 2011
  4. ORAL CONTRACEPTIVE NOS [Concomitant]
     Indication: ORAL CONTRACEPTION
     Dosage: UNK, Unknown
     Route: 048

REACTIONS (12)
  - Heat illness [Recovered/Resolved]
  - Aggression [Not Recovered/Not Resolved]
  - Ocular hyperaemia [Unknown]
  - Asthenia [Recovered/Resolved]
  - Fatigue [Unknown]
  - Insomnia [Unknown]
  - Drug dose omission [Recovered/Resolved]
  - Drug prescribing error [Not Recovered/Not Resolved]
  - Off label use [Unknown]
  - Aggression [None]
  - Ocular hyperaemia [None]
  - Insomnia [None]
